FAERS Safety Report 11920036 (Version 1)
Quarter: 2016Q1

REPORT INFORMATION
  Report Type: Spontaneous
  Country: MX (occurrence: MX)
  Receive Date: 20160115
  Receipt Date: 20160115
  Transmission Date: 20160526
  Serious: Yes (Hospitalization)
  Sender: FDA-Public Use
  Company Number: MX-PFIZER INC-2016008233

PATIENT
  Age: 35 Year
  Sex: Male
  Weight: 82 kg

DRUGS (3)
  1. VITAMIN B12 [Concomitant]
     Active Substance: CYANOCOBALAMIN
     Dosage: 220 MG, UNK
     Route: 048
     Dates: start: 201512
  2. LIPITOR [Suspect]
     Active Substance: ATORVASTATIN CALCIUM
     Indication: BLOOD TRIGLYCERIDES ABNORMAL
     Dosage: 40 MG, DAILY
     Route: 048
     Dates: start: 201512
  3. NEXUS [Concomitant]
     Indication: BLOOD PRESSURE ABNORMAL
     Dosage: 5 MG, UNK
     Route: 048
     Dates: start: 201512

REACTIONS (6)
  - Blood pressure increased [Recovered/Resolved]
  - Dyspnoea [Recovering/Resolving]
  - Blood cholesterol increased [Unknown]
  - Feeling hot [Recovering/Resolving]
  - Hot flush [Recovering/Resolving]
  - Palpitations [Recovering/Resolving]

NARRATIVE: CASE EVENT DATE: 20151215
